FAERS Safety Report 8407050-9 (Version None)
Quarter: 2012Q2

REPORT INFORMATION
  Report Type: 
  Country: None (occurrence: None)
  Receive Date: 20120604
  Receipt Date: 20120531
  Transmission Date: 20120825
  Serious: Yes (Other)
  Sender: FDA-Public Use
  Company Number: PHEH2012US011162

PATIENT
  Sex: Male

DRUGS (2)
  1. NEORAL [Suspect]
     Indication: COMPLICATIONS OF TRANSPLANTED KIDNEY
     Dosage: 200 MG, BID
     Route: 048
     Dates: start: 20120225
  2. MYFORTIC [Concomitant]
     Dosage: UNK UKN, UNK

REACTIONS (4)
  - FEMUR FRACTURE [None]
  - ROAD TRAFFIC ACCIDENT [None]
  - UPPER LIMB FRACTURE [None]
  - WRIST FRACTURE [None]
